FAERS Safety Report 8375235-6 (Version None)
Quarter: 2012Q2

REPORT INFORMATION
  Report Type: 
  Country: None (occurrence: None)
  Receive Date: 20120522
  Receipt Date: 20120516
  Transmission Date: 20120825
  Serious: Yes (Hospitalization, Other)
  Sender: FDA-Public Use
  Company Number: US-AMGEN-USASP2012030934

PATIENT
  Age: 30 Year
  Sex: Female

DRUGS (1)
  1. ENBREL [Suspect]
     Indication: RHEUMATOID ARTHRITIS
     Dosage: 50 MG, QWK
     Dates: start: 20070101

REACTIONS (6)
  - RHEUMATOID ARTHRITIS [None]
  - TEMPOROMANDIBULAR JOINT SYNDROME [None]
  - WEIGHT INCREASED [None]
  - THYROID CANCER [None]
  - ACNE [None]
  - INJECTION SITE PAIN [None]
